FAERS Safety Report 6397584-3 (Version None)
Quarter: 2009Q4

REPORT INFORMATION
  Report Type: 
  Country: None (occurrence: None)
  Receive Date: 20091012
  Receipt Date: 20090930
  Transmission Date: 20100525
  Serious: Yes (Death)
  Sender: FDA-Public Use
  Company Number: BR-PFIZER INC-2009276525

PATIENT
  Age: 82 Year

DRUGS (6)
  1. REVATIO [Suspect]
     Indication: PULMONARY HYPERTENSION
     Dosage: 20 MG, 1X/DAY
     Route: 048
     Dates: start: 20070706
  2. CORTISONE [Concomitant]
  3. FLUIMUCIL [Concomitant]
  4. BONIVA [Concomitant]
  5. ASCORBIC ACID [Concomitant]
  6. CENTRUM [Concomitant]

REACTIONS (2)
  - PNEUMONIA [None]
  - RESPIRATORY FAILURE [None]
